FAERS Safety Report 7231336-7 (Version None)
Quarter: 2011Q1

REPORT INFORMATION
  Report Type: 
  Country: None (occurrence: None)
  Receive Date: 20110107
  Receipt Date: 20101223
  Transmission Date: 20110831
  Serious: Yes (Other)
  Sender: FDA-Public Use
  Company Number: DE-2010-2437

PATIENT
  Age: 40 Year
  Sex: Male

DRUGS (3)
  1. NAVELBINE [Suspect]
     Indication: OESOPHAGEAL CARCINOMA
     Dates: start: 20100721, end: 20100908
  2. INEGY [Concomitant]
  3. PANTOPRAZOL [Concomitant]

REACTIONS (5)
  - HEADACHE [None]
  - PHOTOSENSITIVITY REACTION [None]
  - OFF LABEL USE [None]
  - HYPERAESTHESIA [None]
  - NAUSEA [None]
